FAERS Safety Report 9578666 (Version 1)
Quarter: 2013Q4

REPORT INFORMATION
  Report Type: Spontaneous
  Country: US (occurrence: US)
  Receive Date: 20131001
  Receipt Date: 20131001
  Transmission Date: 20140711
  Serious: No
  Sender: FDA-Public Use
  Company Number: US-AMGEN-USASP2013014288

PATIENT
  Age: 83 Year
  Sex: Female
  Weight: 49.89 kg

DRUGS (7)
  1. ENBREL [Suspect]
     Indication: RHEUMATOID ARTHRITIS
     Dosage: 50 MG, QWK
     Route: 058
  2. MAGNESIUM [Concomitant]
     Dosage: 1000 UNIT, UNK
  3. PREDNISONE [Concomitant]
     Dosage: 50 MG, UNK
  4. FOLIC ACID [Concomitant]
     Dosage: 5 MG, UNK
  5. VITAMIN E                          /00110501/ [Concomitant]
     Dosage: 1000 UNIT, UNK
  6. VITAMIN C                          /00008001/ [Concomitant]
     Dosage: 500 MG, UNK
  7. TRIAMTEREEN/HYDROCHLOOTTHIAZIDE [Concomitant]
     Dosage: 25 TO 50  MG, UNK

REACTIONS (1)
  - Injection site pain [Recovered/Resolved]
